FAERS Safety Report 6253405-0 (Version None)
Quarter: 2009Q2

REPORT INFORMATION
  Report Type: 
  Country: None (occurrence: None)
  Receive Date: 20090626
  Receipt Date: 20080725
  Transmission Date: 20091009
  Serious: Yes (Other)
  Sender: FDA-Public Use
  Company Number: 577567

PATIENT
  Age: 43 Year
  Sex: Male
  Weight: 85.7 kg

DRUGS (1)
  1. XELODA [Suspect]
     Indication: COLORECTAL CANCER
     Dosage: 2500 MG  2 PER DAY  ORAL
     Route: 048
     Dates: start: 20080616, end: 20080720

REACTIONS (1)
  - BLOOD TRIGLYCERIDES INCREASED [None]
